FAERS Safety Report 17021330 (Version 4)
Quarter: 2021Q1

REPORT INFORMATION
  Report Type: Spontaneous
  Country: US (occurrence: US)
  Receive Date: 20191112
  Receipt Date: 20210204
  Transmission Date: 20210419
  Serious: No
  Sender: FDA-Public Use
  Company Number: US-PFIZER INC-2019483510

PATIENT
  Age: 29 Year
  Sex: Male
  Weight: 99.79 kg

DRUGS (4)
  1. GENOTROPIN MQ [Suspect]
     Active Substance: SOMATROPIN
     Indication: ENDOCRINE DISORDER
     Dosage: 0.6 MG, DAILY
     Route: 058
     Dates: end: 202005
  2. HYDROCORTISONE. [Concomitant]
     Active Substance: HYDROCORTISONE
     Indication: THYROID DISORDER
     Dosage: UNK
  3. SYNTHROID [Concomitant]
     Active Substance: LEVOTHYROXINE SODIUM
     Indication: THYROID DISORDER
     Dosage: UNK
  4. GENOTROPIN MQ [Suspect]
     Active Substance: SOMATROPIN
     Indication: BONE DENSITY ABNORMAL

REACTIONS (3)
  - Inappropriate schedule of product administration [Not Recovered/Not Resolved]
  - Hormone level abnormal [Unknown]
  - Illness [Unknown]

NARRATIVE: CASE EVENT DATE: 202005
